FAERS Safety Report 8757966 (Version 1)
Quarter: 2012Q4

REPORT INFORMATION
  Report Type: 
  Country: US (occurrence: US)
  Receive Date: 20120828
  Receipt Date: 20120828
  Transmission Date: 20130627
  Serious: No
  Sender: FDA-Public Use
  Company Number: US-PFIZER INC-2012208757

PATIENT
  Sex: Male

DRUGS (1)
  1. SUTENT [Suspect]
     Indication: NEOPLASM MALIGNANT
     Dosage: 37.5 mg, 1x/day (taking 25mg capsule and a capsule 12.5mg once a day)
     Route: 048
     Dates: start: 20120618

REACTIONS (1)
  - Glossodynia [Not Recovered/Not Resolved]
